FAERS Safety Report 15406353 (Version 1)
Quarter: 2018Q3

REPORT INFORMATION
  Report Type: Spontaneous
  Country: US (occurrence: US)
  Receive Date: 20180919
  Receipt Date: 20180919
  Transmission Date: 20181010
  Serious: Yes (Other)
  Sender: FDA-Public Use
  Company Number: None

PATIENT
  Age: 44 Year
  Sex: Female
  Weight: 68.04 kg

DRUGS (1)
  1. HYDROCHLOROTHIAZIDE 12.5MG [Suspect]
     Active Substance: HYDROCHLOROTHIAZIDE
     Indication: HYPERTENSION
     Dosage: ?          QUANTITY:12.5 MG MILLIGRAM(S);?
     Route: 048

REACTIONS (4)
  - Drug ineffective [None]
  - Grip strength decreased [None]
  - Hypoaesthesia [None]
  - Therapy change [None]

NARRATIVE: CASE EVENT DATE: 20180501
